FAERS Safety Report 20354654 (Version 2)
Quarter: 2022Q2

REPORT INFORMATION
  Report Type: Spontaneous
  Country: US (occurrence: US)
  Receive Date: 20220120
  Receipt Date: 20220420
  Transmission Date: 20220720
  Serious: No
  Sender: FDA-Public Use
  Company Number: US-DSJP-DSU-2022-101945AA

PATIENT
  Sex: Female

DRUGS (1)
  1. TURALIO [Suspect]
     Active Substance: PEXIDARTINIB HYDROCHLORIDE
     Indication: Giant cell tumour of tendon sheath
     Dosage: 400 MG, BID
     Route: 048
     Dates: start: 20210826

REACTIONS (4)
  - Feeling abnormal [Recovered/Resolved]
  - Hair colour changes [Recovered/Resolved]
  - Swelling face [Recovered/Resolved]
  - Periorbital swelling [Recovered/Resolved]
